FAERS Safety Report 7330775-3 (Version None)
Quarter: 2011Q1

REPORT INFORMATION
  Report Type: 
  Country: None (occurrence: None)
  Receive Date: 20110225
  Receipt Date: 20110225
  Transmission Date: 20110831
  Serious: Yes (Hospitalization)
  Sender: FDA-Public Use
  Company Number: None

PATIENT
  Age: 68 Year
  Sex: Female

DRUGS (12)
  1. TRANSPUPILLARY THERMOTHERAPY WITH ICG DYE INJECTION [Suspect]
     Indication: MALIGNANT MELANOMA
     Dosage: MONTHLY TTT + ICG (75MG)
     Dates: start: 20100915, end: 20110105
  2. TRILEPTAL [Concomitant]
  3. TRILIPIX [Concomitant]
  4. CALCIUM [Concomitant]
  5. MULTI-VITAMIN [Concomitant]
  6. ASPIRIN [Concomitant]
  7. COLACE [Concomitant]
  8. VISTARIL [Concomitant]
  9. ACIPHEX [Concomitant]
  10. ZOLOFT [Concomitant]
  11. RANIBIZUMAB [Suspect]
     Indication: MALIGNANT MELANOMA
     Dosage: 0.5MG EVERY 2 WEEKS IVT
     Route: 042
     Dates: start: 20100811, end: 20110105
  12. FEMARA [Concomitant]

REACTIONS (1)
  - HOSPITALISATION [None]
